FAERS Safety Report 20877805 (Version 6)
Quarter: 2022Q4

REPORT INFORMATION
  Report Type: Report from Study
  Country: PT (occurrence: PT)
  Receive Date: 20220526
  Receipt Date: 20221018
  Transmission Date: 20230113
  Serious: Yes (Hospitalization)
  Sender: FDA-Public Use
  Company Number: PT-ABBVIE-22K-130-4404571-00

PATIENT
  Age: 72 Year
  Sex: Female

DRUGS (28)
  1. UPADACITINIB [Suspect]
     Active Substance: UPADACITINIB
     Indication: Rheumatoid arthritis
     Route: 048
     Dates: start: 20181204, end: 20220515
  2. METHOTREXATE [Concomitant]
     Active Substance: METHOTREXATE
     Indication: Rheumatoid arthritis
     Route: 048
     Dates: start: 20040630
  3. METHOTREXATE [Concomitant]
     Active Substance: METHOTREXATE
     Indication: Rheumatoid arthritis
     Route: 048
     Dates: start: 20220510
  4. FOLIC ACID [Concomitant]
     Active Substance: FOLIC ACID
     Indication: Rheumatoid arthritis
     Route: 048
     Dates: start: 20040630
  5. PANTOPRAZOLE SODIUM [Concomitant]
     Active Substance: PANTOPRAZOLE SODIUM
     Indication: Prophylaxis
     Route: 048
     Dates: start: 20010118
  6. GLUCOSAMINE and CHONDORITIN STRUCTOMAX [Concomitant]
     Indication: Rheumatoid arthritis
     Dosage: 1500+500 MG
     Route: 048
     Dates: start: 20181001
  7. CHONDROITIN [Concomitant]
     Active Substance: CHONDROITIN
     Indication: Rheumatoid arthritis
     Route: 048
     Dates: start: 20181001, end: 20220518
  8. PREDNISOLONE (LEPICORTINOL) [Concomitant]
     Indication: Rheumatoid arthritis
     Route: 048
     Dates: start: 20160229, end: 20180903
  9. PREDNISOLONE (LEPICORTINOL) [Concomitant]
     Indication: Rheumatoid arthritis
     Route: 048
     Dates: start: 20180904, end: 20190210
  10. PREDNISOLONE (LEPICORTINOL) [Concomitant]
     Indication: Rheumatoid arthritis
     Route: 048
     Dates: start: 20190904
  11. PREDNISOLONE (LEPICORTINOL) [Concomitant]
     Indication: Rheumatoid arthritis
     Route: 048
     Dates: start: 20220222
  12. VALTREX [Concomitant]
     Active Substance: VALACYCLOVIR HYDROCHLORIDE
     Indication: Antiviral prophylaxis
     Route: 061
     Dates: start: 20190701, end: 20190707
  13. VALTREX [Concomitant]
     Active Substance: VALACYCLOVIR HYDROCHLORIDE
     Indication: Antiviral prophylaxis
     Route: 048
     Dates: start: 20190715
  14. SULFAMETOXAZOL and TRIMETOPRIM [Concomitant]
     Indication: Prophylaxis urinary tract infection
     Dosage: 1/2 PILL PER DAY, 800+160MG
     Route: 048
     Dates: start: 20201006
  15. EBASTINE [Concomitant]
     Active Substance: EBASTINE
     Indication: Seasonal allergy
     Dosage: TIME INTERVAL: AS NECESSARY
     Route: 048
     Dates: start: 20191201
  16. EBASTINE [Concomitant]
     Active Substance: EBASTINE
     Indication: Seasonal allergy
     Dosage: TIME INTERVAL: AS NECESSARY
     Route: 048
     Dates: start: 202008, end: 202008
  17. FLUTICASONE FUROATE [Concomitant]
     Active Substance: FLUTICASONE FUROATE
     Indication: Seasonal allergy
     Dosage: TIME INTERVAL: AS NECESSARY
     Route: 045
     Dates: start: 20190508
  18. FLUIMUCIL [Concomitant]
     Active Substance: ACETYLCYSTEINE
     Indication: Cough
     Dosage: TIME INTERVAL: AS NECESSARY
     Route: 048
     Dates: start: 20191201
  19. FLUIMUCIL [Concomitant]
     Active Substance: ACETYLCYSTEINE
     Indication: Cough
     Route: 048
     Dates: start: 20191201, end: 20191203
  20. PREGABALIN [Concomitant]
     Active Substance: PREGABALIN
     Indication: Neuralgia
     Route: 048
     Dates: start: 20210105
  21. NAPROXEN [Concomitant]
     Active Substance: NAPROXEN
     Indication: Rheumatoid arthritis
     Route: 048
     Dates: start: 20100118, end: 20210315
  22. NAPROXEN [Concomitant]
     Active Substance: NAPROXEN
     Indication: Rheumatoid arthritis
     Route: 048
     Dates: start: 20210615
  23. VITAMIN D [Concomitant]
     Active Substance: VITAMIN D NOS
     Indication: Neck pain
     Dosage: 0.266/1.5 MG/ML
     Route: 048
     Dates: start: 20210315
  24. ALENDRONIC ACID and VITAMIN D [Concomitant]
     Indication: Osteoporosis
     Route: 048
     Dates: start: 20161001, end: 20210315
  25. ALENDRONIC ACID and VITAMIN D [Concomitant]
     Indication: Osteoporosis
     Dosage: 80+5600 MG
     Route: 048
     Dates: start: 20210615
  26. ACETAMINOPHEN\TRAMADOL [Concomitant]
     Active Substance: ACETAMINOPHEN\TRAMADOL
     Indication: Back pain
     Dosage: 37.5+325 MG
     Route: 048
     Dates: start: 20211028
  27. CIPROFLOXACIN [Concomitant]
     Active Substance: CIPROFLOXACIN
     Indication: Urinary tract infection
     Route: 048
     Dates: start: 20211214, end: 20211222
  28. CIPROFLOXACIN [Concomitant]
     Active Substance: CIPROFLOXACIN
     Indication: Urinary tract infection
     Route: 048
     Dates: start: 20220510, end: 20220518

REACTIONS (1)
  - Pancreatitis acute [Recovered/Resolved]

NARRATIVE: CASE EVENT DATE: 20220518
